FAERS Safety Report 25337573 (Version 2)
Quarter: 2025Q2

REPORT INFORMATION
  Report Type: Spontaneous
  Country: ES (occurrence: ES)
  Receive Date: 20250520
  Receipt Date: 20250624
  Transmission Date: 20250717
  Serious: Yes (Hospitalization, Other)
  Sender: MYLAN
  Company Number: ES-ETHYPHARM-2025001228

PATIENT
  Age: 16 Year
  Sex: Female

DRUGS (2)
  1. ZOLEDRONIC ACID [Suspect]
     Active Substance: ZOLEDRONIC ACID
     Indication: Osteopenia
     Dosage: 4 MILLIGRAM, QW
  2. FILGRASTIM [Concomitant]
     Active Substance: FILGRASTIM
     Indication: Cyclic neutropenia
     Dosage: 480 MICROGRAM, Q3D (480 MCG EVERY 72 HOURS)

REACTIONS (4)
  - Sepsis [Recovered/Resolved]
  - Osteomyelitis [Unknown]
  - Osteonecrosis of jaw [Recovered/Resolved with Sequelae]
  - Off label use [Recovered/Resolved with Sequelae]
